FAERS Safety Report 18062915 (Version 2)
Quarter: 2021Q2

REPORT INFORMATION
  Report Type: Report from Study
  Country: UA (occurrence: UA)
  Receive Date: 20200723
  Receipt Date: 20210617
  Transmission Date: 20210717
  Serious: Yes (Other)
  Sender: FDA-Public Use
  Company Number: UA-SEATTLE GENETICS-2020SGN02391

PATIENT
  Sex: Female

DRUGS (1)
  1. BRENTUXIMAB VEDOTIN [Suspect]
     Active Substance: BRENTUXIMAB VEDOTIN
     Indication: HODGKIN^S DISEASE REFRACTORY
     Dosage: 95 MILLIGRAM
     Route: 042
     Dates: start: 20200227

REACTIONS (3)
  - Polyneuropathy [Unknown]
  - Blood creatinine increased [Unknown]
  - Hodgkin^s disease refractory [Unknown]
